FAERS Safety Report 5081202-0 (Version None)
Quarter: 2006Q3

REPORT INFORMATION
  Report Type: 
  Country: None (occurrence: None)
  Receive Date: 20060814
  Receipt Date: 20060814
  Transmission Date: 20061208
  Serious: No
  Sender: FDA-Public Use
  Company Number: None

PATIENT
  Age: 57 Year
  Sex: Female

DRUGS (2)
  1. HALOPERIDOL [Suspect]
  2. CLOPIDOGREL [Suspect]

REACTIONS (1)
  - NEUROLEPTIC MALIGNANT SYNDROME [None]
